FAERS Safety Report 18211029 (Version 1)
Quarter: 2020Q3

REPORT INFORMATION
  Report Type: Spontaneous
  Country: CA (occurrence: CA)
  Receive Date: 20200830
  Receipt Date: 20200830
  Transmission Date: 20201103
  Serious: Yes (Hospitalization, Other)
  Sender: FDA-Public Use
  Company Number: CA-ASTRAZENECA-2020SF07908

PATIENT

DRUGS (9)
  1. APO?LAMOTRIGINE [Suspect]
     Active Substance: LAMOTRIGINE
     Indication: DEPRESSION
     Route: 065
  2. BUPROPION. [Suspect]
     Active Substance: BUPROPION
     Indication: DEPRESSION
     Dosage: 350.0MG UNKNOWN
     Route: 065
  3. LEVOMEPROMAZINE MALEATE [Suspect]
     Active Substance: LEVOMEPROMAZINE MALEATE
     Indication: DEPRESSION
     Dosage: 25.0MG UNKNOWN
     Route: 065
  4. NORTRIPTYLINE HYDROCHLORIDE. [Suspect]
     Active Substance: NORTRIPTYLINE HYDROCHLORIDE
     Indication: DEPRESSION
     Dosage: 50.0MG UNKNOWN
     Route: 065
  5. QUETIAPINE FUMARATE. [Suspect]
     Active Substance: QUETIAPINE FUMARATE
     Indication: DEPRESSION
     Dosage: 300.0MG UNKNOWN
     Route: 048
  6. APO?LITHIUM CARBONATE [Suspect]
     Active Substance: LITHIUM CARBONATE
     Indication: DEPRESSION
     Dosage: 600.0MG UNKNOWN
     Route: 065
  7. VENLAFAXINE HYDROCHLORIDE. [Suspect]
     Active Substance: VENLAFAXINE HYDROCHLORIDE
     Indication: DEPRESSION
     Dosage: 150.0MG UNKNOWN
     Route: 065
  8. APO?MIRTAZAPINE [Suspect]
     Active Substance: MIRTAZAPINE
     Indication: DEPRESSION
     Dosage: 45.0MG UNKNOWN
     Route: 065
  9. VENLAFAXINE HYDROCHLORIDE. [Suspect]
     Active Substance: VENLAFAXINE HYDROCHLORIDE
     Indication: DEPRESSION
     Dosage: UNKNOWN
     Route: 065

REACTIONS (15)
  - Depression [Recovered/Resolved]
  - Insomnia [Recovered/Resolved]
  - Drug ineffective [Recovered/Resolved]
  - Major depression [Recovered/Resolved]
  - Depressed mood [Recovered/Resolved]
  - Drug intolerance [Recovered/Resolved]
  - Abulia [Recovered/Resolved]
  - Restless legs syndrome [Recovered/Resolved]
  - Sleep disorder [Recovered/Resolved]
  - Decreased interest [Recovered/Resolved]
  - Emotional distress [Recovered/Resolved]
  - Obsessive-compulsive disorder [Recovered/Resolved]
  - Suicide attempt [Recovered/Resolved]
  - Feelings of worthlessness [Recovered/Resolved]
  - Psychomotor hyperactivity [Recovered/Resolved]
